FAERS Safety Report 6126739-8 (Version None)
Quarter: 2009Q1

REPORT INFORMATION
  Report Type: 
  Country: None (occurrence: None)
  Receive Date: 20090320
  Receipt Date: 20080610
  Transmission Date: 20090719
  Serious: No
  Sender: FDA-Public Use
  Company Number: US-ABBOTT-08P-163-0456522-00

PATIENT
  Sex: Female
  Weight: 133.93 kg

DRUGS (1)
  1. ERYTHROMYCIN [Suspect]
     Indication: NASOPHARYNGITIS
     Dates: start: 19730101, end: 19730101

REACTIONS (2)
  - MALAISE [None]
  - SKIN DISCOLOURATION [None]
